FAERS Safety Report 4359915-5 (Version None)
Quarter: 2004Q2

REPORT INFORMATION
  Report Type: 
  Country: None (occurrence: None)
  Receive Date: 20040518
  Receipt Date: 20040507
  Transmission Date: 20050107
  Serious: Yes (Hospitalization, Other)
  Sender: FDA-Public Use
  Company Number: PHBS2004US06217

PATIENT
  Age: 26 Year
  Sex: Female

DRUGS (7)
  1. CYCLOSPORINE [Suspect]
     Indication: RENAL TRANSPLANT
     Route: 065
  2. MYCOPHENOLATE MOFETIL [Suspect]
  3. PREDNISONE [Suspect]
     Dosage: 10 MG/D
  4. PROPRANOLOL [Concomitant]
  5. AMLODIPINE [Concomitant]
  6. VALACYCLOVIR HCL [Concomitant]
     Indication: HERPES SIMPLEX
  7. METHYLPREDNISOLONE [Suspect]
     Dosage: 250 MG/DAY
     Route: 040

REACTIONS (23)
  - ANAEMIA [None]
  - ANOREXIA [None]
  - BACILLARY ANGIOMATOSIS [None]
  - BARTONELLOSIS [None]
  - BICUSPID AORTIC VALVE [None]
  - CARDIAC MURMUR [None]
  - CHILLS [None]
  - ERYTHEMA [None]
  - HAEMATOCRIT DECREASED [None]
  - HERPES SIMPLEX [None]
  - HYPERHIDROSIS [None]
  - HYPOTENSION [None]
  - LYMPHADENOPATHY [None]
  - MALAISE [None]
  - MYALGIA [None]
  - NEUTROPHIL COUNT DECREASED [None]
  - OEDEMA PERIPHERAL [None]
  - PLATELET COUNT DECREASED [None]
  - PYREXIA [None]
  - SKIN LESION [None]
  - TRANSPLANT REJECTION [None]
  - WEIGHT DECREASED [None]
  - WHITE BLOOD CELL COUNT DECREASED [None]
